FAERS Safety Report 9086615 (Version 1)
Quarter: 2013Q1

REPORT INFORMATION
  Report Type: Spontaneous
  Country: US (occurrence: US)
  Receive Date: 20130131
  Receipt Date: 20130131
  Transmission Date: 20140127
  Serious: No
  Sender: FDA-Public Use
  Company Number: US-ABBOTT-12P-163-0989275-00

PATIENT
  Age: 29 Year
  Sex: 0
  Weight: 131.66 kg

DRUGS (4)
  1. HUMIRA [Suspect]
     Indication: PSORIASIS
     Dates: start: 20120920
  2. METFORMIN (NON-ABBOTT) [Concomitant]
     Indication: PRODUCT USED FOR UNKNOWN INDICATION
  3. LISINOPRIL (NON-ABBOTT) [Concomitant]
     Indication: BLOOD PRESSURE
  4. MONETASONE CREAM (NON-ABBOTT) [Concomitant]
     Indication: PRODUCT USED FOR UNKNOWN INDICATION

REACTIONS (2)
  - Wound [Not Recovered/Not Resolved]
  - Injection site pain [Not Recovered/Not Resolved]
